FAERS Safety Report 21138811 (Version 1)
Quarter: 2022Q3

REPORT INFORMATION
  Report Type: Spontaneous
  Country: US (occurrence: US)
  Receive Date: 20220727
  Receipt Date: 20220727
  Transmission Date: 20221027
  Serious: No
  Sender: FDA-Public Use
  Company Number: US-BIOMARINAP-US-2022-144565

PATIENT

DRUGS (1)
  1. VIMIZIM [Suspect]
     Active Substance: ELOSULFASE ALFA
     Indication: Product used for unknown indication
     Dosage: UNK, QW
     Route: 042

REACTIONS (3)
  - Asthenia [Recovered/Resolved]
  - Dysstasia [Recovered/Resolved]
  - Gait disturbance [Recovered/Resolved]
